FAERS Safety Report 25122226 (Version 1)
Quarter: 2025Q1

REPORT INFORMATION
  Report Type: Spontaneous
  Country: GB (occurrence: GB)
  Receive Date: 20250326
  Receipt Date: 20250326
  Transmission Date: 20250408
  Serious: Yes (Other)
  Sender: TEVA
  Company Number: GB-MHRA-TPP34444158C6118765YC1742309672437

PATIENT
  Age: 81 Year
  Sex: Female
  Weight: 83 kg

DRUGS (11)
  1. AMLODIPINE [Suspect]
     Active Substance: AMLODIPINE BESYLATE
     Indication: Ill-defined disorder
     Route: 065
  2. ESTRIOL [Concomitant]
     Active Substance: ESTRIOL
     Indication: Ill-defined disorder
     Dates: start: 20250318
  3. OMEPRAZOLE [Concomitant]
     Active Substance: OMEPRAZOLE
     Indication: Ill-defined disorder
     Dosage: DAILY TO REDUCE EXCESS S...
     Dates: start: 20220915
  4. ESTRADIOL [Concomitant]
     Active Substance: ESTRADIOL
     Indication: Ill-defined disorder
     Dosage: ONE VAGINAL TABLET TO BE INSERTED  TWICE A WEEK
     Dates: start: 20220915
  5. TOLTERODINE TARTRATE [Concomitant]
     Active Substance: TOLTERODINE TARTRATE
     Indication: Ill-defined disorder
     Dosage: TAKE ONE TABLET TWICE A DAY FOR THE BLADDER
     Dates: start: 20220915, end: 20250318
  6. RAMIPRIL [Concomitant]
     Active Substance: RAMIPRIL
     Indication: Blood pressure measurement
     Dosage: FOR THE HEART
     Dates: start: 20220915
  7. SOLIFENACIN [Concomitant]
     Active Substance: SOLIFENACIN
     Indication: Ill-defined disorder
     Dosage: IF NO SIDE EFFECTS AND NO IMPROV...
     Dates: start: 20250318
  8. BISOPROLOL [Concomitant]
     Active Substance: BISOPROLOL
     Indication: Ill-defined disorder
     Dates: start: 20220915
  9. SIMVASTATIN [Concomitant]
     Active Substance: SIMVASTATIN
     Indication: Ill-defined disorder
     Dosage: EVENING, TO REDUCE CHOLESTEROL
     Dates: start: 20220915
  10. CITALOPRAM [Concomitant]
     Active Substance: CITALOPRAM
     Indication: Ill-defined disorder
     Dosage: FOR YOUR MOOD
     Dates: start: 20220915
  11. INDAPAMIDE [Concomitant]
     Active Substance: INDAPAMIDE
     Indication: Blood pressure measurement
     Dosage: EACH MORNING, FOR FLUID
     Dates: start: 20221109

REACTIONS (1)
  - Joint swelling [Recovered/Resolved]
